FAERS Safety Report 4938486-6 (Version None)
Quarter: 2006Q1

REPORT INFORMATION
  Report Type: 
  Country: None (occurrence: None)
  Receive Date: 20060309
  Receipt Date: 20060113
  Transmission Date: 20060701
  Serious: Yes (Other)
  Sender: FDA-Public Use
  Company Number: PHBS2006JP01008

PATIENT
  Age: 50 Year
  Sex: Male

DRUGS (4)
  1. LIPITOR [Concomitant]
     Dosage: 10 MG, UNK
     Route: 048
  2. AMARYL [Concomitant]
     Dosage: 2 MG, UNK
     Route: 048
  3. DIOVAN [Suspect]
     Indication: HYPERTENSION
     Dosage: 80 MG/DAY
     Route: 048
     Dates: end: 20050101
  4. DIOVAN [Suspect]
     Dosage: 160 MG/DAY
     Route: 048
     Dates: start: 20050101

REACTIONS (5)
  - DIZZINESS [None]
  - EPILEPSY [None]
  - FALL [None]
  - HYPOGLYCAEMIA [None]
  - SYNCOPE [None]
